FAERS Safety Report 12425873 (Version 2)
Quarter: 2018Q2

REPORT INFORMATION
  Report Type: Spontaneous
  Country: US (occurrence: US)
  Receive Date: 20160601
  Receipt Date: 20180501
  Transmission Date: 20180711
  Serious: No
  Sender: FDA-Public Use
  Company Number: US-PERRIGO-16US000645

PATIENT
  Age: 48 Year
  Sex: Female
  Weight: 120.18 kg

DRUGS (3)
  1. TRIAMCINOLONE ACETONIDE. [Suspect]
     Active Substance: TRIAMCINOLONE ACETONIDE
     Indication: ECZEMA
     Dosage: ONE THIN LAYER, SINGLE
     Route: 061
     Dates: start: 201510, end: 201510
  2. TRIAMCINOLONE ACETONIDE. [Suspect]
     Active Substance: TRIAMCINOLONE ACETONIDE
     Dosage: 1 APPLICATION, SINGLE
     Route: 061
     Dates: start: 20160101, end: 20160101
  3. TRIAMCINOLONE ACETONIDE. [Suspect]
     Active Substance: TRIAMCINOLONE ACETONIDE
     Indication: RASH
     Dosage: ONE THIN LAYER, PRN
     Route: 061
     Dates: start: 2013, end: 201510

REACTIONS (5)
  - Application site erythema [Unknown]
  - Skin hypopigmentation [Unknown]
  - Epidermal necrosis [Unknown]
  - Application site scar [Unknown]
  - Application site burn [Recovered/Resolved]

NARRATIVE: CASE EVENT DATE: 201510
